FAERS Safety Report 12460943 (Version 1)
Quarter: 2016Q2

REPORT INFORMATION
  Report Type: Spontaneous
  Country: SA (occurrence: SA)
  Receive Date: 20160613
  Receipt Date: 20160613
  Transmission Date: 20160815
  Serious: Yes (Congenital Anomaly, Other)
  Sender: FDA-Public Use
  Company Number: SA-HERITAGE PHARMACEUTICALS-2016HTG00149

PATIENT
  Sex: Male
  Weight: 2.27 kg

DRUGS (2)
  1. ACETAZOLAMIDE. [Suspect]
     Active Substance: ACETAZOLAMIDE
     Indication: INTRACRANIAL PRESSURE INCREASED
     Dosage: 1000 MG, 1X/DAY
     Route: 064
  2. FOLIC ACID. [Concomitant]
     Active Substance: FOLIC ACID
     Route: 064

REACTIONS (4)
  - Hypodontia [Not Recovered/Not Resolved]
  - Foetal exposure during pregnancy [Recovered/Resolved]
  - Limb malformation [Not Recovered/Not Resolved]
  - Syndactyly [Not Recovered/Not Resolved]
